FAERS Safety Report 6703939-7 (Version None)
Quarter: 2010Q2

REPORT INFORMATION
  Report Type: 
  Country: None (occurrence: None)
  Receive Date: 20100430
  Receipt Date: 20100419
  Transmission Date: 20101027
  Serious: Yes (Other)
  Sender: FDA-Public Use
  Company Number: US-PFIZER INC-2010049859

PATIENT

DRUGS (2)
  1. NEURONTIN [Suspect]
  2. CYMBALTA [Suspect]

REACTIONS (2)
  - ANGER [None]
  - SUICIDAL IDEATION [None]
